FAERS Safety Report 10593622 (Version 2)
Quarter: 2014Q4

REPORT INFORMATION
  Report Type: Spontaneous
  Country: US (occurrence: US)
  Receive Date: 20141119
  Receipt Date: 20141223
  Transmission Date: 20150529
  Serious: Yes (Hospitalization, Other)
  Sender: FDA-Public Use
  Company Number: US-ELI_LILLY_AND_COMPANY-US201411003693

PATIENT
  Sex: Female

DRUGS (2)
  1. CYMBALTA [Suspect]
     Active Substance: DULOXETINE HYDROCHLORIDE
     Dosage: 60 MG, UNKNOWN
     Route: 065
     Dates: end: 20141110
  2. CYMBALTA [Suspect]
     Active Substance: DULOXETINE HYDROCHLORIDE
     Indication: BIPOLAR DISORDER
     Dosage: 90 MG, UNKNOWN
     Route: 065
     Dates: start: 2006

REACTIONS (24)
  - Jaw fracture [Unknown]
  - Paraesthesia [Unknown]
  - Drug withdrawal syndrome [Unknown]
  - Diarrhoea [Unknown]
  - Headache [Unknown]
  - Concussion [Unknown]
  - Hemiparesis [Unknown]
  - Limb injury [Unknown]
  - Nerve compression [Unknown]
  - Mental disorder [Unknown]
  - Spinal column injury [Unknown]
  - Visual impairment [Unknown]
  - Apathy [Unknown]
  - Ligament sprain [Unknown]
  - Anger [Unknown]
  - Seizure [Unknown]
  - Dizziness [Unknown]
  - Tinnitus [Unknown]
  - Tooth fracture [Unknown]
  - Ankle fracture [Unknown]
  - Fall [Unknown]
  - Abdominal discomfort [Unknown]
  - Facial bones fracture [Unknown]
  - Off label use [Unknown]
